FAERS Safety Report 9477036 (Version 1)
Quarter: 2013Q3

REPORT INFORMATION
  Report Type: Spontaneous
  Country: GB (occurrence: GB)
  Receive Date: 20130826
  Receipt Date: 20130826
  Transmission Date: 20140515
  Serious: Yes (Other)
  Sender: FDA-Public Use
  Company Number: GB-PFIZER INC-2013239727

PATIENT
  Age: 67 Year
  Sex: Male

DRUGS (3)
  1. CLINDAMYCIN HCL [Suspect]
     Indication: INFECTION
     Dosage: 150 MG, UNK
     Route: 048
  2. SIMVASTATIN [Concomitant]
     Dosage: UNK
  3. METFORMIN [Concomitant]
     Dosage: UNK

REACTIONS (2)
  - Breast mass [Recovered/Resolved]
  - Gynaecomastia [Recovered/Resolved]
